FAERS Safety Report 11888899 (Version 1)
Quarter: 2016Q1

REPORT INFORMATION
  Report Type: Spontaneous
  Country: US (occurrence: None)
  Receive Date: 20160104
  Receipt Date: 20160104
  Transmission Date: 20160526
  Serious: No
  Sender: FDA-Public Use
  Company Number: None

PATIENT
  Age: 86 Year
  Sex: Male
  Weight: 83.5 kg

DRUGS (17)
  1. CARVEDILOL. [Concomitant]
     Active Substance: CARVEDILOL
  2. ASPIRIN. [Concomitant]
     Active Substance: ASPIRIN
  3. LISINOPRIL. [Concomitant]
     Active Substance: LISINOPRIL
  4. GLIPIZIDE. [Concomitant]
     Active Substance: GLIPIZIDE
  5. JANUVIA [Concomitant]
     Active Substance: SITAGLIPTIN PHOSPHATE
  6. XARELTO [Suspect]
     Active Substance: RIVAROXABAN
     Indication: ATRIAL FIBRILLATION
     Route: 048
  7. LEVOTHYROXINE. [Concomitant]
     Active Substance: LEVOTHYROXINE
  8. FINASTERIDE. [Concomitant]
     Active Substance: FINASTERIDE
  9. AMLODIPINE [Concomitant]
     Active Substance: AMLODIPINE BESYLATE
  10. LOVASTATIN. [Concomitant]
     Active Substance: LOVASTATIN
  11. PLAVIX [Concomitant]
     Active Substance: CLOPIDOGREL BISULFATE
  12. LEVOTHYROXINE. [Concomitant]
     Active Substance: LEVOTHYROXINE
  13. DULOXETINE. [Concomitant]
     Active Substance: DULOXETINE
  14. ZOFRAN [Concomitant]
     Active Substance: ONDANSETRON HYDROCHLORIDE
  15. LANTUS [Concomitant]
     Active Substance: INSULIN GLARGINE
  16. GABAPENTIN. [Concomitant]
     Active Substance: GABAPENTIN
  17. PERCOCET [Concomitant]
     Active Substance: ACETAMINOPHEN\OXYCODONE HYDROCHLORIDE

REACTIONS (2)
  - Pneumonia [None]
  - International normalised ratio increased [None]

NARRATIVE: CASE EVENT DATE: 20160101
